FAERS Safety Report 9418045 (Version 2)
Quarter: 2013Q3

REPORT INFORMATION
  Report Type: Spontaneous
  Country: GB (occurrence: GB)
  Receive Date: 20130724
  Receipt Date: 20130802
  Transmission Date: 20140515
  Serious: Yes (Hospitalization, Other)
  Sender: FDA-Public Use
  Company Number: GB-ASTRAZENECA-2013SE52982

PATIENT
  Age: 82 Year
  Sex: Female

DRUGS (12)
  1. TICAGRELOR [Suspect]
     Indication: MYOCARDIAL INFARCTION
     Route: 048
     Dates: start: 20121229, end: 20130718
  2. TICAGRELOR [Suspect]
     Indication: ACUTE MYOCARDIAL INFARCTION
     Route: 048
     Dates: start: 20121229, end: 20130718
  3. BISOPROLOL [Suspect]
     Indication: MYOCARDIAL INFARCTION
     Route: 048
     Dates: start: 201212, end: 201307
  4. BISOPROLOL [Suspect]
     Indication: MYOCARDIAL INFARCTION
  5. B BLOCKER [Concomitant]
  6. RAMIPRIL [Concomitant]
     Indication: MYOCARDIAL INFARCTION
     Route: 048
     Dates: start: 201212
  7. OMEPRAZOLE [Concomitant]
     Indication: GASTROINTESTINAL DISORDER
     Route: 048
  8. PREDNISOLONE [Concomitant]
     Indication: FIBROMYALGIA
     Route: 048
  9. SIMVASTATIN [Concomitant]
     Indication: MYOCARDIAL INFARCTION
     Route: 048
     Dates: start: 201212
  10. OXYCODONE [Concomitant]
     Indication: PAIN
     Route: 048
  11. ASPIRIN [Concomitant]
     Dates: start: 201212
  12. LEVOTHYROXINE [Concomitant]

REACTIONS (4)
  - Atrial flutter [Recovered/Resolved]
  - Electrocardiogram abnormal [Recovered/Resolved]
  - Syncope [Recovered/Resolved]
  - Presyncope [Unknown]
